FAERS Safety Report 9131014 (Version 2)
Quarter: 2013Q4

REPORT INFORMATION
  Report Type: Spontaneous
  Country: IT (occurrence: IT)
  Receive Date: 20130301
  Receipt Date: 20131028
  Transmission Date: 20140711
  Serious: Yes (Death, Hospitalization)
  Sender: FDA-Public Use
  Company Number: IT-BRISTOL-MYERS SQUIBB COMPANY-17403387

PATIENT
  Age: 91 Year
  Sex: Female

DRUGS (7)
  1. COUMADIN TABS 5 MG [Suspect]
     Indication: ACUTE MYOCARDIAL INFARCTION
     Route: 048
     Dates: start: 20120120, end: 20120305
  2. BRUFEN [Suspect]
     Indication: BONE PAIN
     Route: 048
     Dates: start: 20110427, end: 20120305
  3. CARDIOASPIRIN [Suspect]
     Indication: ACUTE MYOCARDIAL INFARCTION
     Dosage: 100 MG TABLETS
     Route: 048
     Dates: start: 20110420, end: 20120305
  4. ACETYLSALICYLIC ACID [Concomitant]
  5. LASIX [Concomitant]
  6. NORVASC [Concomitant]
  7. LANSOPRAZOLE [Concomitant]

REACTIONS (1)
  - Anaemia [Fatal]
